FAERS Safety Report 19885931 (Version 1)
Quarter: 2021Q3

REPORT INFORMATION
  Report Type: Spontaneous
  Country: JP (occurrence: JP)
  Receive Date: 20210927
  Receipt Date: 20210927
  Transmission Date: 20211014
  Serious: Yes (Life-Threatening, Hospitalization, Other)
  Sender: FDA-Public Use
  Company Number: JP-ACCORD-239469

PATIENT
  Age: 79 Year
  Sex: Female

DRUGS (5)
  1. MIGLITOL. [Suspect]
     Active Substance: MIGLITOL
     Indication: TYPE 2 DIABETES MELLITUS
  2. GLUCOSE/GLUCOSE MONOHYDRATE/GLUCOSE OXIDASE [Suspect]
     Active Substance: DEXTROSE
     Indication: TYPE 2 DIABETES MELLITUS
  3. SITAGLIPTIN/SITAGLIPTIN PHOSPHATE [Suspect]
     Active Substance: SITAGLIPTIN PHOSPHATE
     Indication: TYPE 2 DIABETES MELLITUS
  4. INSULIN GLARGINE [Suspect]
     Active Substance: INSULIN GLARGINE
     Indication: TYPE 2 DIABETES MELLITUS
  5. GLIMEPIRIDE. [Suspect]
     Active Substance: GLIMEPIRIDE
     Indication: TYPE 2 DIABETES MELLITUS

REACTIONS (4)
  - Reperfusion injury [Recovering/Resolving]
  - Hemiplegia [Recovering/Resolving]
  - Hypoglycaemic encephalopathy [Recovering/Resolving]
  - Unresponsive to stimuli [Recovering/Resolving]
